FAERS Safety Report 4606539-8 (Version None)
Quarter: 2005Q2

REPORT INFORMATION
  Report Type: 
  Country: None (occurrence: None)
  Receive Date: 20050223
  Receipt Date: 20040907
  Transmission Date: 20051028
  Serious: Yes (Life-Threatening, Hospitalization, Other)
  Sender: FDA-Public Use
  Company Number: WAES 0409USA00565

PATIENT
  Age: 70 Year
  Sex: Female

DRUGS (7)
  1. ZOCOR [Suspect]
     Indication: HYPERLIPIDAEMIA
     Dosage: 80 MG/DAILY/PO
     Route: 048
     Dates: start: 20040214, end: 20040903
  2. VIOXX [Suspect]
     Dosage: 25 MG/DAILY/PO
     Route: 048
     Dates: start: 20040211, end: 20040903
  3. CLARINEX [Concomitant]
  4. FOSAMAX [Concomitant]
  5. PREVPAC [Concomitant]
  6. PROTONIX [Concomitant]
  7. SYNTHROID [Concomitant]

REACTIONS (1)
  - RHABDOMYOLYSIS [None]
